FAERS Safety Report 12759281 (Version 2)
Quarter: 2016Q3

REPORT INFORMATION
  Report Type: Spontaneous
  Country: US (occurrence: US)
  Receive Date: 20160919
  Receipt Date: 20160930
  Transmission Date: 20161109
  Serious: Yes (Hospitalization, Other)
  Sender: FDA-Public Use
  Company Number: US-BAYER-2016-180674

PATIENT
  Age: 27 Year
  Sex: Female

DRUGS (1)
  1. SKYLA [Suspect]
     Active Substance: LEVONORGESTREL
     Indication: CONTRACEPTION
     Dosage: 14 MCG/24HR, CONT
     Dates: start: 20160614, end: 20160909

REACTIONS (6)
  - Streptococcal sepsis [None]
  - Tubo-ovarian abscess [Recovering/Resolving]
  - Pelvic inflammatory disease [Recovering/Resolving]
  - Pelvic pain [Recovering/Resolving]
  - Streptococcal abscess [Recovering/Resolving]
  - Streptococcus test positive [Recovering/Resolving]

NARRATIVE: CASE EVENT DATE: 201609
